FAERS Safety Report 4578241-2 (Version None)
Quarter: 2005Q1

REPORT INFORMATION
  Report Type: 
  Country: None (occurrence: None)
  Receive Date: 20050201
  Receipt Date: 20050201
  Transmission Date: 20050727
  Serious: Yes (Other)
  Sender: FDA-Public Use
  Company Number: None

PATIENT
  Sex: Female

DRUGS (1)
  1. DITROPAN [Suspect]
     Indication: URINARY INCONTINENCE
     Dosage: 5 MG BID PO
     Route: 048
     Dates: start: 20031121, end: 20040620

REACTIONS (1)
  - WEIGHT INCREASED [None]
